FAERS Safety Report 16639297 (Version 1)
Quarter: 2019Q3

REPORT INFORMATION
  Report Type: Spontaneous
  Country: CA (occurrence: CA)
  Receive Date: 20190726
  Receipt Date: 20190726
  Transmission Date: 20191004
  Serious: Yes (Disabling, Other)
  Sender: FDA-Public Use
  Company Number: CA-TEVA-2019-CA-1082847

PATIENT
  Age: 70 Year
  Sex: Male
  Weight: 68 kg

DRUGS (2)
  1. TEVA-ALENDRONATE [Suspect]
     Active Substance: ALENDRONATE SODIUM
     Indication: BREAST CANCER
     Route: 048
  2. ANASTROZOLE. [Concomitant]
     Active Substance: ANASTROZOLE

REACTIONS (4)
  - Pollakiuria [Unknown]
  - Ocular hyperaemia [Unknown]
  - Vitreous floaters [Unknown]
  - Tinnitus [Unknown]
